FAERS Safety Report 18122597 (Version 1)
Quarter: 2020Q3

REPORT INFORMATION
  Report Type: Spontaneous
  Country: TR (occurrence: TR)
  Receive Date: 20200807
  Receipt Date: 20200807
  Transmission Date: 20201103
  Serious: Yes (Death)
  Sender: FDA-Public Use
  Company Number: NVSC2020TR217728

PATIENT
  Age: 33 Year
  Sex: Female

DRUGS (1)
  1. METFORMIN [Suspect]
     Active Substance: METFORMIN HYDROCHLORIDE
     Indication: TYPE 2 DIABETES MELLITUS
     Dosage: 30 TABLETS OF 1000 MG (0.4 GR/KG TOTAL)
     Route: 065

REACTIONS (6)
  - Metabolic acidosis [Fatal]
  - Respiratory failure [Fatal]
  - Cardiac arrest [Fatal]
  - Lactic acidosis [Fatal]
  - Suicide attempt [Fatal]
  - Toxicity to various agents [Fatal]
